FAERS Safety Report 7091225-8 (Version None)
Quarter: 2010Q4

REPORT INFORMATION
  Report Type: 
  Country: None (occurrence: None)
  Receive Date: 20101109
  Receipt Date: 20101027
  Transmission Date: 20110411
  Serious: Yes (Death)
  Sender: FDA-Public Use
  Company Number: JP-ROCHE-739066

PATIENT
  Age: 69 Year
  Sex: Female

DRUGS (4)
  1. CELLCEPT [Suspect]
     Indication: PROPHYLAXIS AGAINST TRANSPLANT REJECTION
     Dosage: NOTE: DOSAGE IS UNCERTAIN
     Route: 048
  2. CYCLOSPORINE [Concomitant]
     Dosage: NOTE: DOSAGE IS UNCERTAIN
     Route: 065
  3. ADRENAL CORTICAL EXTRACT [Concomitant]
     Dosage: NOTE: DOSAGE IS UNCERTAIN.
     Route: 065
  4. BASILIXIMAB [Concomitant]
     Dosage: NOTE: DOSAGE IS UNCERTAIN
     Route: 065

REACTIONS (3)
  - ACUTE RESPIRATORY DISTRESS SYNDROME [None]
  - HERPES ZOSTER DISSEMINATED [None]
  - ORAL CANDIDIASIS [None]
